FAERS Safety Report 18472125 (Version 1)
Quarter: 2020Q4

REPORT INFORMATION
  Report Type: Spontaneous
  Country: GB (occurrence: GB)
  Receive Date: 20201105
  Receipt Date: 20201105
  Transmission Date: 20210114
  Serious: Yes (Hospitalization)
  Sender: FDA-Public Use
  Company Number: GB-TEVA-2020-GB-1844941

PATIENT
  Age: 58 Year
  Sex: Male

DRUGS (13)
  1. DIHYDROCODEINE [Concomitant]
     Active Substance: DIHYDROCODEINE
  2. OMEPRAZOLE. [Concomitant]
     Active Substance: OMEPRAZOLE
  3. LOPERAMIDE HYDROCHLORIDE. [Concomitant]
     Active Substance: LOPERAMIDE HYDROCHLORIDE
  4. SALBUTAMOL [Concomitant]
     Active Substance: ALBUTEROL
  5. PREDNISOLONE. [Concomitant]
     Active Substance: PREDNISOLONE
  6. METHADONE [Suspect]
     Active Substance: METHADONE HYDROCHLORIDE
     Indication: DRUG DEPENDENCE
     Dosage: 25 MG
     Route: 048
  7. TRIMBOW [Concomitant]
     Active Substance: BECLOMETHASONE DIPROPIONATE\FORMOTEROL FUMARATE\GLYCOPYRROLATE
  8. PARACETAMOL [Concomitant]
     Active Substance: ACETAMINOPHEN
  9. CLARITHROMYCIN. [Suspect]
     Active Substance: CLARITHROMYCIN
     Indication: PNEUMONIA
     Dosage: 1000 MG
     Route: 048
     Dates: start: 20200919, end: 20200919
  10. MIRTAZAPINE. [Concomitant]
     Active Substance: MIRTAZAPINE
  11. ZOPICLONE [Concomitant]
     Active Substance: ZOPICLONE
  12. AMOXICILLIN. [Concomitant]
     Active Substance: AMOXICILLIN
  13. ENOXAPARIN SODIUM. [Concomitant]
     Active Substance: ENOXAPARIN SODIUM

REACTIONS (2)
  - Respiratory depression [Recovered/Resolved]
  - Loss of consciousness [Recovered/Resolved]

NARRATIVE: CASE EVENT DATE: 20200919
